FAERS Safety Report 6056316-9 (Version None)
Quarter: 2009Q1

REPORT INFORMATION
  Report Type: 
  Country: None (occurrence: None)
  Receive Date: 20090129
  Receipt Date: 20090119
  Transmission Date: 20090719
  Serious: Yes (Other)
  Sender: FDA-Public Use
  Company Number: GB-SOLVAY-00208001085

PATIENT
  Age: 69 Year
  Sex: Male

DRUGS (3)
  1. SERTRALINE [Concomitant]
     Indication: DRUG USE FOR UNKNOWN INDICATION
     Dosage: DAILY DOSE:  UNKNOWN
     Route: 065
  2. COVERSYL [Suspect]
     Indication: HYPERTENSION
     Dosage: DAILY DOSE: 2 MILLIGRAM(S)
     Route: 048
     Dates: start: 20000101
  3. COVERSYL [Suspect]
     Dosage: DAILY DOSE: 4 MILLIGRAM(S)
     Route: 048
     Dates: start: 20060101, end: 20080710

REACTIONS (6)
  - CATARACT OPERATION [None]
  - CONJUNCTIVITIS [None]
  - COUGH [None]
  - DRY EYE [None]
  - RETINAL DETACHMENT [None]
  - VITREOUS DETACHMENT [None]
